FAERS Safety Report 5406286-9 (Version None)
Quarter: 2007Q3

REPORT INFORMATION
  Report Type: 
  Country: None (occurrence: None)
  Receive Date: 20070806
  Receipt Date: 20070727
  Transmission Date: 20080115
  Serious: Yes (Other)
  Sender: FDA-Public Use
  Company Number: PT-AMGEN-US216588

PATIENT
  Sex: Female

DRUGS (7)
  1. ENBREL [Suspect]
     Indication: RHEUMATOID ARTHRITIS
     Route: 058
     Dates: start: 20070227, end: 20070301
  2. PREDNISOLONE [Concomitant]
     Indication: RHEUMATOID ARTHRITIS
     Dosage: 5 MG EVERY
     Dates: start: 20050401
  3. FOLIC ACID [Concomitant]
  4. NAPROXEN [Concomitant]
     Indication: RHEUMATOID ARTHRITIS
     Route: 048
     Dates: start: 20050701
  5. ISONIAZID [Concomitant]
     Indication: ANTIBIOTIC PROPHYLAXIS
     Dosage: UNKNOWN
     Dates: start: 20070101
  6. LEDERTREXATO [Concomitant]
     Indication: RHEUMATOID ARTHRITIS
     Route: 048
     Dates: start: 20061001
  7. SALAZOPYRIN [Concomitant]
     Dosage: UNKNOWN
     Dates: start: 20050701

REACTIONS (3)
  - ERYTHEMA [None]
  - FACE OEDEMA [None]
  - URTICARIA [None]
